FAERS Safety Report 15221323 (Version 8)
Quarter: 2018Q4

REPORT INFORMATION
  Report Type: Spontaneous
  Country: DE (occurrence: DE)
  Receive Date: 20180731
  Receipt Date: 20181123
  Transmission Date: 20190204
  Serious: Yes (Hospitalization)
  Sender: FDA-Public Use
  Company Number: PHHY2018DE029155

PATIENT
  Sex: Female

DRUGS (10)
  1. CO-DIOVAN [Suspect]
     Active Substance: HYDROCHLOROTHIAZIDE\VALSARTAN
     Indication: PRODUCT USED FOR UNKNOWN INDICATION
     Dosage: 1 DF, QD
     Route: 065
     Dates: end: 2012
  2. DIOVAN [Suspect]
     Active Substance: VALSARTAN
     Indication: PRODUCT USED FOR UNKNOWN INDICATION
     Dosage: 1 DF, QD (IN THE EVENING)
     Route: 065
     Dates: end: 2012
  3. DIOVAN [Suspect]
     Active Substance: VALSARTAN
     Dosage: 1 DF, QD (IN THE EVENING)
     Route: 065
     Dates: start: 20180718
  4. VALSARTAN HEXAL COMP [Suspect]
     Active Substance: VALSARTAN
     Dosage: 1 DF, QD
     Route: 065
  5. DIOVAN [Suspect]
     Active Substance: VALSARTAN
     Dosage: 160 MG, UNK
     Route: 065
     Dates: start: 2018
  6. CO-DIOVAN [Suspect]
     Active Substance: HYDROCHLOROTHIAZIDE\VALSARTAN
     Dosage: 1 DF, QD (IN THE MORNING)
     Route: 065
     Dates: start: 20180718
  7. VALSARTAN HEXAL [Suspect]
     Active Substance: VALSARTAN
     Indication: PRODUCT USED FOR UNKNOWN INDICATION
     Dosage: 1 DF, QD(IN THE EVENING)
     Route: 065
     Dates: start: 2012, end: 2015
  8. VALSARTAN HEXAL [Suspect]
     Active Substance: VALSARTAN
     Dosage: 1 DF, QD
     Route: 065
  9. VALSARTAN HEXAL COMP [Suspect]
     Active Substance: VALSARTAN
     Indication: PRODUCT USED FOR UNKNOWN INDICATION
     Dosage: 1 DF, QD(IN THE MORNING)
     Route: 065
     Dates: start: 2012, end: 2015
  10. ATACAND [Suspect]
     Active Substance: CANDESARTAN CILEXETIL
     Indication: PRODUCT USED FOR UNKNOWN INDICATION
     Dosage: UNK
     Route: 065
     Dates: start: 2015

REACTIONS (6)
  - Genital pain [Recovered/Resolved]
  - Cystitis [Unknown]
  - Cystitis [Recovered/Resolved]
  - Genital pain [Recovered/Resolved]
  - Nasal dryness [Unknown]
  - Cystitis [Recovered/Resolved]

NARRATIVE: CASE EVENT DATE: 2014
